FAERS Safety Report 4456957-6 (Version None)
Quarter: 2004Q3

REPORT INFORMATION
  Report Type: 
  Country: None (occurrence: None)
  Receive Date: 20040921
  Receipt Date: 20040914
  Transmission Date: 20050211
  Serious: Yes (Death, Hospitalization)
  Sender: FDA-Public Use
  Company Number: 2004232813NL

PATIENT
  Age: 69 Year
  Sex: Male

DRUGS (14)
  1. CELECOXIB VS PLACEBO (CELECOXIB VS PLACEBO) CAPSULE [Suspect]
     Indication: NON-SMALL CELL LUNG CANCER
     Dosage: 400 MG, BID,ORAL
     Route: 048
     Dates: start: 20040318, end: 20040401
  2. COMPARATOR-DOCETAXEL (DOCETAXEL) INJECTION [Suspect]
     Indication: NON-SMALL CELL LUNG CANCER
     Dosage: 75MG/M2, CYCLIC, EVERY 3 WKS, IV
     Route: 042
     Dates: end: 20040401
  3. CARBOPLATIN [Suspect]
     Indication: NON-SMALL CELL LUNG CANCER
     Dosage: 6 AUC, CYCLIC, EVERY 3 WKS, IV
     Route: 042
     Dates: end: 20040401
  4. ASCAL (ACETYLSALICYLATE CALCIUM) [Suspect]
     Indication: CARDIAC DISORDER
     Dosage: 80 MG, QD, ORAL
     Route: 048
  5. ONDANSETRON HCL [Concomitant]
  6. LACTULOSE [Concomitant]
  7. FUROSEMIDE [Concomitant]
  8. DEXAMETHSONE [Concomitant]
  9. PANTOZOL (PANTOPRAZOLE SODIUM) [Concomitant]
  10. DIFLUCAN [Concomitant]
  11. HALDOL [Concomitant]
  12. OXYCODONE (OXYCODONE) [Concomitant]
  13. SEVREDOL [Concomitant]
  14. PARACETAMOL [Concomitant]

REACTIONS (4)
  - MALIGNANT NEOPLASM PROGRESSION [None]
  - NON-SMALL CELL LUNG CANCER METASTATIC [None]
  - RECTAL HAEMORRHAGE [None]
  - REFUSAL OF TREATMENT BY PATIENT [None]
